FAERS Safety Report 19152934 (Version 1)
Quarter: 2021Q2

REPORT INFORMATION
  Report Type: Spontaneous
  Country: US (occurrence: US)
  Receive Date: 20210417
  Receipt Date: 20210417
  Transmission Date: 20210717
  Serious: No
  Sender: FDA-Public Use
  Company Number: None

PATIENT
  Age: 63 Year
  Sex: Female
  Weight: 57.15 kg

DRUGS (1)
  1. QBREXZA [Suspect]
     Active Substance: GLYCOPYRRONIUM TOSYLATE
     Indication: HYPERHIDROSIS
     Dosage: ?          QUANTITY:1 SINGLE USE CLOTH;?
     Route: 061
     Dates: start: 20210414, end: 20210417

REACTIONS (2)
  - Vision blurred [None]
  - Photosensitivity reaction [None]

NARRATIVE: CASE EVENT DATE: 20210417
